FAERS Safety Report 9829966 (Version 1)
Quarter: 2014Q1

REPORT INFORMATION
  Report Type: Spontaneous
  Country: TR (occurrence: TR)
  Receive Date: 20140120
  Receipt Date: 20140120
  Transmission Date: 20141002
  Serious: Yes (Hospitalization)
  Sender: FDA-Public Use
  Company Number: TR-MYLANLABS-2014S1000424

PATIENT
  Age: 74 Year
  Sex: Female

DRUGS (3)
  1. METHOTREXATE [Suspect]
     Indication: RHEUMATOID ARTHRITIS
     Dosage: 10 MG/WEEK
     Route: 065
  2. TELMISARTAN [Concomitant]
     Indication: HYPERTENSION
     Dosage: 80 MG/DAY
     Route: 065
  3. LEVOTHYROXINE SODIUM [Concomitant]
     Indication: AUTOIMMUNE THYROIDITIS
     Dosage: 100 MG/DAY
     Route: 065

REACTIONS (5)
  - Pancytopenia [Recovering/Resolving]
  - Renal failure [Recovering/Resolving]
  - Skin necrosis [Recovered/Resolved]
  - Hypercalcaemia [Recovering/Resolving]
  - Bone tuberculosis [Recovering/Resolving]
